FAERS Safety Report 4474831-6 (Version None)
Quarter: 2004Q4

REPORT INFORMATION
  Report Type: 
  Country: None (occurrence: None)
  Receive Date: 20041012
  Receipt Date: 20040930
  Transmission Date: 20050328
  Serious: Yes (Hospitalization)
  Sender: FDA-Public Use
  Company Number: 2004PK01613

PATIENT
  Age: 75 Year
  Sex: Female
  Weight: 60 kg

DRUGS (10)
  1. BELOC-ZOK [Suspect]
     Indication: HYPERTENSION
     Dosage: 95 MG DAILY PO
     Route: 048
     Dates: end: 20040321
  2. DIGITOXIN TAB [Suspect]
     Indication: CARDIAC FAILURE
     Dosage: 0.07 MG DAILY PO
     Route: 048
     Dates: start: 19950101, end: 20040311
  3. DIGITOXIN TAB [Suspect]
     Indication: CARDIAC FAILURE
     Dosage: 0.07 MG DAILY PO
     Route: 048
     Dates: start: 20040320
  4. ALDACTONE [Suspect]
     Indication: ASCITES
     Dosage: 25 MG DAILY PO
     Route: 048
     Dates: start: 20031201, end: 20040311
  5. FALITHROM [Concomitant]
  6. FURORESE [Concomitant]
  7. ACTRAPHANE [Concomitant]
  8. ACTRAPID HUMAN [Concomitant]
  9. NORVASC [Concomitant]
  10. XANEF [Concomitant]

REACTIONS (6)
  - ATRIAL FIBRILLATION [None]
  - BRADYCARDIA [None]
  - DRUG INTERACTION [None]
  - HYPERKALAEMIA [None]
  - THERAPEUTIC AGENT TOXICITY [None]
  - VENTRICULAR EXTRASYSTOLES [None]
